FAERS Safety Report 14311418 (Version 1)
Quarter: 2017Q4

REPORT INFORMATION
  Report Type: Spontaneous
  Country: US (occurrence: US)
  Receive Date: 20171221
  Receipt Date: 20171221
  Transmission Date: 20180321
  Serious: No
  Sender: FDA-Public Use
  Company Number: US-NOVEN PHARMACEUTICALS, INC.-US2017001078

PATIENT

DRUGS (3)
  1. ZYRTEC [Concomitant]
     Active Substance: CETIRIZINE HYDROCHLORIDE
     Dosage: 5 MG, UNK
  2. MINIVELLE [Suspect]
     Active Substance: ESTRADIOL
     Indication: HYSTERECTOMY
     Dosage: 0.1 MG, UNKNOWN
     Route: 062
     Dates: start: 2017, end: 2017
  3. SINGULAIR [Concomitant]
     Active Substance: MONTELUKAST SODIUM

REACTIONS (7)
  - Product adhesion issue [Recovered/Resolved]
  - Anger [Unknown]
  - Emotional disorder [Unknown]
  - Therapy cessation [Not Recovered/Not Resolved]
  - Hormone level abnormal [Unknown]
  - Crying [Unknown]
  - Anxiety [Unknown]
